FAERS Safety Report 21163752 (Version 1)
Quarter: 2022Q3

REPORT INFORMATION
  Report Type: Spontaneous
  Country: US (occurrence: US)
  Receive Date: 20220803
  Receipt Date: 20220803
  Transmission Date: 20221026
  Serious: Yes (Death, Hospitalization)
  Sender: FDA-Public Use
  Company Number: US-STRIDES ARCOLAB LIMITED-2022SP009683

PATIENT
  Age: 40 Year
  Sex: Female

DRUGS (2)
  1. PREDNISOLONE [Suspect]
     Active Substance: PREDNISOLONE
     Indication: Disseminated mycobacterium avium complex infection
     Dosage: UNK
     Route: 065
  2. RITUXIMAB [Suspect]
     Active Substance: RITUXIMAB
     Indication: Disseminated mycobacterium avium complex infection
     Dosage: 2 DOSAGE FORM, UNKNOWN
     Route: 065

REACTIONS (1)
  - Therapy non-responder [Fatal]
